FAERS Safety Report 10195025 (Version 2)
Quarter: 2014Q2

REPORT INFORMATION
  Report Type: Report from Study
  Country: US (occurrence: US)
  Receive Date: 20140526
  Receipt Date: 20140602
  Transmission Date: 20141212
  Serious: Yes (Hospitalization)
  Sender: FDA-Public Use
  Company Number: PHHY2014US060324

PATIENT
  Age: 81 Year
  Sex: Female

DRUGS (10)
  1. ICL670A [Suspect]
     Dosage: 500 MG, QD
     Route: 048
     Dates: start: 20100325
  2. ICL670A [Suspect]
     Dosage: 500 MG, BID
     Route: 048
     Dates: start: 20130626
  3. ICL670A [Suspect]
     Dosage: 500 MG, QD
     Route: 048
     Dates: start: 20131106
  4. CYANOCOBALAMIN [Concomitant]
     Indication: SUPPLEMENTATION THERAPY
     Dosage: 1000 UG, QD
     Route: 048
     Dates: start: 20110831
  5. ACETAMINOPHEN [Concomitant]
     Indication: PAIN
     Dosage: 5500 MG, Q6H
     Route: 048
     Dates: start: 20130605
  6. METACLOPRAMIDE [Concomitant]
     Indication: NAUSEA
     Dosage: 5 MG, TID
     Route: 048
     Dates: start: 20131023
  7. PREDNISONE [Concomitant]
     Indication: VASCULITIS
     Dosage: 10 MG, QD
     Route: 048
     Dates: start: 20130605
  8. PROTONIX [Concomitant]
     Indication: GASTROOESOPHAGEAL REFLUX DISEASE
     Dosage: 40 MG, QD
     Route: 048
     Dates: start: 20140409
  9. ESCITALOPRAM [Concomitant]
     Indication: DEPRESSION
     Dosage: 10 MG, QD
     Route: 048
     Dates: start: 20140409
  10. HYDROCODONE [Concomitant]
     Indication: PAIN

REACTIONS (6)
  - Depressed level of consciousness [Not Recovered/Not Resolved]
  - Dysarthria [Not Recovered/Not Resolved]
  - Vertigo [Not Recovered/Not Resolved]
  - Headache [Not Recovered/Not Resolved]
  - Dizziness [Unknown]
  - Hypokalaemia [Unknown]
